FAERS Safety Report 21697929 (Version 3)
Quarter: 2023Q1

REPORT INFORMATION
  Report Type: Spontaneous
  Country: US (occurrence: US)
  Receive Date: 20221208
  Receipt Date: 20230113
  Transmission Date: 20230418
  Serious: Yes (Hospitalization)
  Sender: FDA-Public Use
  Company Number: US-SANOFI-01373192

PATIENT
  Age: 82 Year
  Sex: Female

DRUGS (1)
  1. MULTAQ [Suspect]
     Active Substance: DRONEDARONE
     Dosage: 400 MG, BID

REACTIONS (5)
  - Headache [Unknown]
  - Dizziness [Unknown]
  - Asthenia [Unknown]
  - Heart rate decreased [Unknown]
  - Product contamination physical [Unknown]
